FAERS Safety Report 8968143 (Version 1)
Quarter: 2012Q4

REPORT INFORMATION
  Report Type: 
  Country: TR (occurrence: TR)
  Receive Date: 20121217
  Receipt Date: 20121217
  Transmission Date: 20130627
  Serious: Yes (Other)
  Sender: FDA-Public Use
  Company Number: TR-PFIZER INC-2012313438

PATIENT
  Age: 65 Year
  Sex: Female

DRUGS (1)
  1. GEMCITABINE HYDROCHLORIDE [Suspect]
     Indication: OVARIAN CANCER
     Dosage: 1000 mg/m2, on days 1, 8 and 15 in a 28-day cycle
     Dates: start: 200704

REACTIONS (1)
  - Nephrotic syndrome [Recovered/Resolved]
